FAERS Safety Report 8011803-9 (Version None)
Quarter: 2011Q4

REPORT INFORMATION
  Report Type: 
  Country: None (occurrence: None)
  Receive Date: 20111228
  Receipt Date: 20111219
  Transmission Date: 20120403
  Serious: Yes (Hospitalization)
  Sender: FDA-Public Use
  Company Number: US-BAYER-2011-034989

PATIENT
  Age: 18 Year
  Sex: Female
  Weight: 70 kg

DRUGS (4)
  1. DROSPIRENONE AND ETHINYL ESTRADIOL [Suspect]
     Indication: PREMENSTRUAL SYNDROME
  2. IBUPROFEN (ADVIL) [Concomitant]
     Dosage: UNK
     Route: 048
     Dates: start: 20090729
  3. DROSPIRENONE AND ETHINYL ESTRADIOL [Suspect]
     Indication: CONTRACEPTION
     Dosage: UNK
     Route: 048
     Dates: start: 20090301, end: 20091101
  4. MIDOL EXTENDED RELIEF CAPLETS [Concomitant]
     Dosage: UNK
     Route: 048
     Dates: start: 20090729

REACTIONS (2)
  - GALLBLADDER INJURY [None]
  - CHOLECYSTITIS CHRONIC [None]
